FAERS Safety Report 15868495 (Version 1)
Quarter: 2019Q1

REPORT INFORMATION
  Report Type: Spontaneous
  Country: JP (occurrence: JP)
  Receive Date: 20190125
  Receipt Date: 20190125
  Transmission Date: 20190417
  Serious: Yes (Death)
  Sender: FDA-Public Use
  Company Number: JP-EISAI MEDICAL RESEARCH-EC-2017-029045

PATIENT
  Age: 43 Year
  Sex: Male

DRUGS (2)
  1. LENVIMA [Suspect]
     Active Substance: LENVATINIB
     Indication: ANAPLASTIC THYROID CANCER
     Route: 048
     Dates: start: 20160906, end: 20160919
  2. LENVIMA [Suspect]
     Active Substance: LENVATINIB
     Route: 048
     Dates: start: 20161003, end: 20161203

REACTIONS (3)
  - Impaired healing [Not Recovered/Not Resolved]
  - Malignant neoplasm progression [Fatal]
  - Pneumothorax [Unknown]

NARRATIVE: CASE EVENT DATE: 20160919
